FAERS Safety Report 9353567 (Version 1)
Quarter: 2013Q2

REPORT INFORMATION
  Report Type: Spontaneous
  Country: US (occurrence: US)
  Receive Date: 20130618
  Receipt Date: 20130618
  Transmission Date: 20140414
  Serious: No
  Sender: FDA-Public Use
  Company Number: US-PFIZER INC-2013180712

PATIENT
  Sex: 0

DRUGS (1)
  1. GABAPENTIN [Suspect]
     Dosage: UNK

REACTIONS (10)
  - Fatigue [Unknown]
  - Decreased interest [Unknown]
  - Hallucination, visual [Unknown]
  - Nervousness [Unknown]
  - Nervousness [Unknown]
  - Feeling hot [Unknown]
  - Depression [Unknown]
  - Muscular weakness [Unknown]
  - Hypoaesthesia [Unknown]
  - Muscular weakness [Unknown]
